FAERS Safety Report 15074949 (Version 2)
Quarter: 2023Q4

REPORT INFORMATION
  Report Type: Spontaneous
  Country: US (occurrence: US)
  Receive Date: 20180627
  Receipt Date: 20231128
  Transmission Date: 20240110
  Serious: Yes (Hospitalization)
  Sender: FDA-Public Use
  Company Number: US-SAOL THERAPEUTICS-2017SAO01790

PATIENT
  Age: 36 Year
  Sex: Male

DRUGS (2)
  1. LIORESAL [Suspect]
     Active Substance: BACLOFEN
     Indication: Cerebral palsy
     Dosage: 535 ?G, \DAY
     Route: 037
  2. LIORESAL [Suspect]
     Active Substance: BACLOFEN
     Indication: Quadriplegia

REACTIONS (2)
  - Drug withdrawal syndrome [Unknown]
  - Complication associated with device [Unknown]

NARRATIVE: CASE EVENT DATE: 20171109
